FAERS Safety Report 22311512 (Version 1)
Quarter: 2023Q2

REPORT INFORMATION
  Report Type: Spontaneous
  Country: None (occurrence: US)
  Receive Date: 20230511
  Receipt Date: 20230511
  Transmission Date: 20230722
  Serious: No
  Sender: FDA-Public Use
  Company Number: US-Amphastar Pharmaceuticals, Inc.-2141375

PATIENT
  Age: 45 Year
  Sex: Female
  Weight: 65.909 kg

DRUGS (2)
  1. ENOXAPARIN SODIUM [Suspect]
     Active Substance: ENOXAPARIN SODIUM
     Indication: In vitro fertilisation
     Route: 058
  2. Prenatal vitamins (unspecified) [Concomitant]

REACTIONS (1)
  - Injection site pain [Recovered/Resolved]
